FAERS Safety Report 6749898-2 (Version None)
Quarter: 2010Q2

REPORT INFORMATION
  Report Type: 
  Country: None (occurrence: None)
  Receive Date: 20100527
  Receipt Date: 20100527
  Transmission Date: 20101027
  Serious: Yes (Other)
  Sender: FDA-Public Use
  Company Number: None

PATIENT
  Sex: Male
  Weight: 90.7194 kg

DRUGS (1)
  1. SEPTOCAINE [Suspect]

REACTIONS (10)
  - DRUG EFFECT DECREASED [None]
  - DYSGEUSIA [None]
  - ELECTRIC SHOCK [None]
  - GINGIVAL PAIN [None]
  - INCORRECT DOSE ADMINISTERED [None]
  - NERVE INJURY [None]
  - ORAL PAIN [None]
  - PAIN [None]
  - PARAESTHESIA [None]
  - PARAESTHESIA ORAL [None]
